FAERS Safety Report 19323863 (Version 4)
Quarter: 2021Q4

REPORT INFORMATION
  Report Type: Spontaneous
  Country: US (occurrence: CA)
  Receive Date: 20210528
  Receipt Date: 20211230
  Transmission Date: 20220303
  Serious: Yes (Life-Threatening, Hospitalization, Other)
  Sender: FDA-Public Use
  Company Number: US-ALK-ABELLO A/S-2021AA001893

PATIENT

DRUGS (2)
  1. STERILE DILUENT FOR ALLERGENIC EXTRACT NOS [Suspect]
     Active Substance: ALBUMIN HUMAN OR GLYCERIN OR PHENOL
     Indication: Product used for unknown indication
     Dosage: UNK
     Route: 058
     Dates: start: 20210216
  2. STERILE DILUENT FOR ALLERGENIC EXTRACT NOS [Suspect]
     Active Substance: ALBUMIN HUMAN OR GLYCERIN OR PHENOL
     Dosage: UNK
     Route: 058
     Dates: start: 20210216

REACTIONS (9)
  - Anaphylactic reaction [Unknown]
  - Malaise [Unknown]
  - Cough [Unknown]
  - Swelling face [Unknown]
  - Erythema [Unknown]
  - Swollen tongue [Unknown]
  - Sensation of foreign body [Unknown]
  - Drug monitoring procedure incorrectly performed [Unknown]
  - Off label use [Unknown]

NARRATIVE: CASE EVENT DATE: 20210513
